FAERS Safety Report 21126495 (Version 1)
Quarter: 2022Q3

REPORT INFORMATION
  Report Type: Spontaneous
  Country: US (occurrence: US)
  Receive Date: 20220725
  Receipt Date: 20220725
  Transmission Date: 20221027
  Serious: Yes (Other)
  Sender: FDA-Public Use
  Company Number: US-BRISTOL-MYERS SQUIBB COMPANY-2022-076623

PATIENT
  Age: 86 Year
  Sex: Female
  Weight: 58.3 kg

DRUGS (4)
  1. OPDIVO [Suspect]
     Active Substance: NIVOLUMAB
     Indication: Rectal cancer
     Dosage: DOSE : 480MG;     FREQ : EVERY 4 WEEKS, STRENGTH AND PRESENTATION : 240MG VIAL
     Route: 042
  2. OPDIVO [Suspect]
     Active Substance: NIVOLUMAB
     Indication: Lung neoplasm malignant
  3. OPDIVO [Suspect]
     Active Substance: NIVOLUMAB
     Indication: Hepatic cancer
  4. OPDIVO [Suspect]
     Active Substance: NIVOLUMAB
     Indication: Anal cancer

REACTIONS (1)
  - Drug ineffective [Unknown]
